FAERS Safety Report 14587739 (Version 1)
Quarter: 2018Q1

REPORT INFORMATION
  Report Type: Spontaneous
  Country: MX (occurrence: MX)
  Receive Date: 20180301
  Receipt Date: 20180301
  Transmission Date: 20180509
  Serious: Yes (Death, Other)
  Sender: FDA-Public Use
  Company Number: MX-INCYTE CORPORATION-2018IN001599

PATIENT

DRUGS (2)
  1. JAKAVI [Suspect]
     Active Substance: RUXOLITINIB
     Indication: MYELOFIBROSIS
     Dosage: 20 MG, BID
     Route: 065
     Dates: start: 20110913, end: 2014
  2. JAKAVI [Suspect]
     Active Substance: RUXOLITINIB
     Dosage: 10 MG, Q12H
     Route: 065

REACTIONS (10)
  - Fatigue [Unknown]
  - Anaemia [Recovering/Resolving]
  - Acute graft versus host disease [Recovering/Resolving]
  - Weight decreased [Unknown]
  - Respiratory failure [Fatal]
  - Pruritus [Unknown]
  - Splenomegaly [Unknown]
  - Rash [Unknown]
  - Transaminases increased [Unknown]
  - Pneumonia fungal [Fatal]

NARRATIVE: CASE EVENT DATE: 2014
